FAERS Safety Report 7493174-X (Version None)
Quarter: 2011Q2

REPORT INFORMATION
  Report Type: 
  Country: None (occurrence: None)
  Receive Date: 20110520
  Receipt Date: 20110516
  Transmission Date: 20111010
  Serious: Yes (Hospitalization, Congenital Anomaly, Other)
  Sender: FDA-Public Use
  Company Number: US-PFIZER INC-2008054872

PATIENT
  Sex: Female
  Weight: 3.2 kg

DRUGS (1)
  1. ZOLOFT [Suspect]
     Indication: DEPRESSION
     Dosage: 100 MG, 1X/DAY
     Route: 064

REACTIONS (13)
  - VIRAL RASH [None]
  - ATRIAL SEPTAL DEFECT [None]
  - HAEMANGIOMA [None]
  - TREMOR [None]
  - BRONCHITIS [None]
  - DRUG EXPOSURE DURING PREGNANCY [None]
  - MITRAL VALVE DISEASE [None]
  - CARDIOMEGALY [None]
  - OTITIS MEDIA [None]
  - UPPER RESPIRATORY TRACT INFECTION [None]
  - VIRAL INFECTION [None]
  - SINUSITIS [None]
  - DERMATITIS ATOPIC [None]
